FAERS Safety Report 7901040-8 (Version None)
Quarter: 2011Q4

REPORT INFORMATION
  Report Type: 
  Country: None (occurrence: None)
  Receive Date: 20111108
  Receipt Date: 20111103
  Transmission Date: 20120403
  Serious: Yes (Congenital Anomaly, Other)
  Sender: FDA-Public Use
  Company Number: US-PFIZER INC-2011270397

PATIENT
  Sex: Female

DRUGS (1)
  1. ZOLOFT [Suspect]
     Dosage: UNK
     Route: 064
     Dates: start: 20050801, end: 20060201

REACTIONS (5)
  - MATERNAL EXPOSURE TIMING UNSPECIFIED [None]
  - CRANIOSYNOSTOSIS [None]
  - TRANSPOSITION OF THE GREAT VESSELS [None]
  - DOUBLE OUTLET RIGHT VENTRICLE [None]
  - VENTRICULAR SEPTAL DEFECT [None]
